FAERS Safety Report 11172287 (Version 1)
Quarter: 2015Q2

REPORT INFORMATION
  Report Type: Spontaneous
  Country: PT (occurrence: PT)
  Receive Date: 20150608
  Receipt Date: 20150608
  Transmission Date: 20150821
  Serious: Yes (Hospitalization)
  Sender: FDA-Public Use
  Company Number: PT-TEVA-568007ISR

PATIENT
  Age: 76 Year
  Sex: Female
  Weight: 78 kg

DRUGS (1)
  1. FUROSEMIDA RATIOPHARM 40 MG COMPRIMIDOS [Suspect]
     Active Substance: FUROSEMIDE
     Indication: CARDIAC FAILURE
     Dosage: 160 MILLIGRAM DAILY;
     Route: 048
     Dates: start: 20150513, end: 20150514

REACTIONS (6)
  - Drug ineffective [Recovered/Resolved]
  - Weight increased [Recovered/Resolved]
  - Cardiac failure [Recovered/Resolved]
  - Product substitution issue [Recovered/Resolved]
  - Fluid overload [Recovered/Resolved]
  - Condition aggravated [Recovered/Resolved]

NARRATIVE: CASE EVENT DATE: 20150513
